FAERS Safety Report 15858214 (Version 1)
Quarter: 2018Q4

REPORT INFORMATION
  Report Type: Spontaneous
  Country: US (occurrence: US)
  Receive Date: 20181228
  Receipt Date: 20181228
  Transmission Date: 20190205
  Serious: Yes (Hospitalization)
  Sender: FDA-Public Use
  Company Number: None

PATIENT
  Age: 66 Year
  Sex: Male

DRUGS (1)
  1. OBINUTUZUMAB. [Suspect]
     Active Substance: OBINUTUZUMAB
     Indication: B-CELL LYMPHOMA
     Route: 042
     Dates: start: 20181126, end: 20181127

REACTIONS (6)
  - Anaphylactic reaction [None]
  - Dyspnoea [None]
  - Lethargy [None]
  - Hypertension [None]
  - Swollen tongue [None]
  - Chills [None]

NARRATIVE: CASE EVENT DATE: 20181219
